FAERS Safety Report 18011578 (Version 1)
Quarter: 2020Q3

REPORT INFORMATION
  Report Type: Spontaneous
  Country: JP (occurrence: JP)
  Receive Date: 20200713
  Receipt Date: 20200713
  Transmission Date: 20201103
  Serious: Yes (Hospitalization, Other)
  Sender: FDA-Public Use
  Company Number: JP-SUN PHARMACEUTICAL INDUSTRIES LTD-2020RR-253323

PATIENT
  Age: 72 Year
  Sex: Female

DRUGS (9)
  1. TOREMIFENE [Suspect]
     Active Substance: TOREMIFENE
     Indication: CHEMOTHERAPY
     Dosage: UNK, FOR 10 MONTHS
     Route: 065
  2. TOREMIFENE [Suspect]
     Active Substance: TOREMIFENE
     Indication: BREAST CANCER METASTATIC
  3. ANASTROZOLE. [Suspect]
     Active Substance: ANASTROZOLE
     Indication: BREAST CANCER
     Route: 065
  4. EXEMESTANE. [Suspect]
     Active Substance: EXEMESTANE
     Indication: CHEMOTHERAPY
     Dosage: UNK
     Route: 065
  5. FULVESTRANT. [Suspect]
     Active Substance: FULVESTRANT
     Indication: CHEMOTHERAPY
     Dosage: UNK
     Route: 065
  6. FULVESTRANT. [Suspect]
     Active Substance: FULVESTRANT
     Indication: BREAST CANCER METASTATIC
  7. EVEROLIMUS. [Suspect]
     Active Substance: EVEROLIMUS
     Indication: CHEMOTHERAPY
     Dosage: UNK
     Route: 065
  8. EVEROLIMUS. [Suspect]
     Active Substance: EVEROLIMUS
     Indication: BREAST CANCER METASTATIC
  9. EXEMESTANE. [Suspect]
     Active Substance: EXEMESTANE
     Indication: BREAST CANCER METASTATIC

REACTIONS (8)
  - Metastasis [Unknown]
  - Therapy partial responder [Unknown]
  - Pneumocystis jirovecii pneumonia [Unknown]
  - Hypovolaemia [Unknown]
  - Acute kidney injury [Recovered/Resolved]
  - Disease progression [Unknown]
  - Stomatitis [Unknown]
  - Pyrexia [Recovered/Resolved]
